FAERS Safety Report 8839009 (Version 2)
Quarter: 2012Q4

REPORT INFORMATION
  Report Type: 
  Country: US (occurrence: US)
  Receive Date: 20121015
  Receipt Date: 20121122
  Transmission Date: 20130627
  Serious: No
  Sender: FDA-Public Use
  Company Number: US-BIOGENIDEC-2012BI042572

PATIENT
  Age: 70 None
  Sex: Female

DRUGS (2)
  1. TYSABRI [Suspect]
     Indication: MULTIPLE SCLEROSIS
     Route: 042
     Dates: start: 20120713
  2. AVONEX [Concomitant]
     Indication: MULTIPLE SCLEROSIS
     Route: 030
     Dates: start: 20090220

REACTIONS (13)
  - Inflammation [Unknown]
  - Drug intolerance [Not Recovered/Not Resolved]
  - Muscular weakness [Recovered/Resolved]
  - Oedema peripheral [Recovered/Resolved]
  - Gait disturbance [Not Recovered/Not Resolved]
  - Pain [Unknown]
  - Dyspepsia [Not Recovered/Not Resolved]
  - Back injury [Not Recovered/Not Resolved]
  - Spinal compression fracture [Unknown]
  - Respiratory tract infection [Recovered/Resolved]
  - Fatigue [Recovered/Resolved]
  - Pruritus generalised [Recovered/Resolved]
  - Sinusitis [Recovered/Resolved]
